FAERS Safety Report 15201040 (Version 1)
Quarter: 2018Q4

REPORT INFORMATION
  Report Type: Spontaneous
  Country: US (occurrence: HR)
  Receive Date: 20180726
  Receipt Date: 20180726
  Transmission Date: 20190204
  Serious: Yes (Hospitalization, Other)
  Sender: FDA-Public Use
  Company Number: HR-UNICHEM PHARMACEUTICALS (USA) INC-UCM201807-000170

PATIENT
  Age: 53 Year
  Sex: Male

DRUGS (9)
  1. FLUPHENZINE [Suspect]
     Active Substance: FLUPHENAZINE
  2. QUETIAPINE. [Suspect]
     Active Substance: QUETIAPINE
  3. CLONAZEPAM. [Concomitant]
     Active Substance: CLONAZEPAM
     Route: 051
  4. CLOZAPINE. [Concomitant]
     Active Substance: CLOZAPINE
  5. CLOZAPINE. [Concomitant]
     Active Substance: CLOZAPINE
  6. DIAZEPAM. [Concomitant]
     Active Substance: DIAZEPAM
  7. SULPIRIDE [Concomitant]
     Active Substance: SULPIRIDE
  8. FLUPHENZINE [Suspect]
     Active Substance: FLUPHENAZINE
  9. DIAZEPAM. [Concomitant]
     Active Substance: DIAZEPAM

REACTIONS (3)
  - Liver injury [Recovering/Resolving]
  - Drug-induced liver injury [Recovering/Resolving]
  - Hepatic enzyme increased [Recovering/Resolving]
